FAERS Safety Report 4532052-2 (Version None)
Quarter: 2004Q4

REPORT INFORMATION
  Report Type: 
  Country: None (occurrence: None)
  Receive Date: 20041220
  Receipt Date: 20041209
  Transmission Date: 20050328
  Serious: Yes (Hospitalization)
  Sender: FDA-Public Use
  Company Number: CH-GLAXOSMITHKLINE-B0362077A

PATIENT
  Age: 32 Year
  Sex: Female

DRUGS (5)
  1. 3TC [Suspect]
     Indication: ACUTE HIV INFECTION
     Dosage: 150MG TWICE PER DAY
     Route: 048
     Dates: start: 20040830, end: 20040916
  2. DEROXAT [Suspect]
     Indication: DEPRESSION
     Dosage: 20MG PER DAY
     Route: 048
     Dates: start: 20040906, end: 20040916
  3. VIREAD [Suspect]
     Indication: ACUTE HIV INFECTION
     Dosage: 245MG PER DAY
     Route: 048
     Dates: start: 20040830, end: 20040916
  4. VIRAMUNE [Suspect]
     Indication: ACUTE HIV INFECTION
     Dosage: 200MG TWICE PER DAY
     Route: 048
     Dates: start: 20040830, end: 20040916
  5. UNKNOWN DRUG [Concomitant]
     Indication: CONJUNCTIVITIS
     Dosage: 1DROP THREE TIMES PER DAY
     Route: 047
     Dates: start: 20040910

REACTIONS (12)
  - CHAPPED LIPS [None]
  - CHEILITIS [None]
  - CONJUNCTIVITIS [None]
  - LYMPHADENOPATHY [None]
  - MUCOSAL EROSION [None]
  - MUCOSAL INFLAMMATION [None]
  - NECK PAIN [None]
  - OEDEMA MUCOSAL [None]
  - SECRETION DISCHARGE [None]
  - SKIN ULCER [None]
  - STEVENS-JOHNSON SYNDROME [None]
  - SUPERINFECTION [None]
